FAERS Safety Report 7240795-5 (Version None)
Quarter: 2011Q1

REPORT INFORMATION
  Report Type: 
  Country: None (occurrence: None)
  Receive Date: 20110120
  Receipt Date: 20110120
  Transmission Date: 20110831
  Serious: Yes (Life-Threatening, Hospitalization, Disabling, Other)
  Sender: FDA-Public Use
  Company Number: None

PATIENT
  Age: 69 Year
  Sex: Female
  Weight: 67.1324 kg

DRUGS (1)
  1. LITHIUM CARBONATE [Suspect]
     Indication: BIPOLAR DISORDER
     Dosage: 450 MG A DAY ONCE A DAY
     Dates: start: 20050701, end: 20100217

REACTIONS (6)
  - BRAIN INJURY [None]
  - AMNESIA [None]
  - COMA [None]
  - ABASIA [None]
  - SPEECH DISORDER [None]
  - VISUAL ACUITY REDUCED [None]
